FAERS Safety Report 5565275-4 (Version None)
Quarter: 2007Q4

REPORT INFORMATION
  Report Type: 
  Country: None (occurrence: None)
  Receive Date: 20071218
  Receipt Date: 20011126
  Transmission Date: 20080405
  Serious: Yes (Death)
  Sender: FDA-Public Use
  Company Number: US-ROCHE-300751

PATIENT
  Sex: Male

DRUGS (4)
  1. VERSED [Suspect]
     Dosage: THE PATIENT RECEIVED 2 MG, THEN 2 MG AND 1 MG.
     Route: 042
  2. METHAMPHETAMINE HYDROCHLORIDE [Suspect]
     Indication: DRUG USE FOR UNKNOWN INDICATION
     Route: 065
  3. HEROIN [Suspect]
     Indication: DRUG USE FOR UNKNOWN INDICATION
     Route: 065
  4. VALIUM [Concomitant]

REACTIONS (7)
  - CHRONIC HEPATIC FAILURE [None]
  - COLLAPSE OF LUNG [None]
  - COMA HEPATIC [None]
  - LUNG DISORDER [None]
  - MULTI-ORGAN FAILURE [None]
  - OVERDOSE [None]
  - RESPIRATORY FAILURE [None]
